FAERS Safety Report 10874530 (Version 1)
Quarter: 2015Q1

REPORT INFORMATION
  Report Type: Spontaneous
  Country: US (occurrence: US)
  Receive Date: 20150227
  Receipt Date: 20150227
  Transmission Date: 20150721
  Serious: No
  Sender: FDA-Public Use
  Company Number: US-GLAXOSMITHKLINE-US2015009406

PATIENT
  Sex: Female

DRUGS (5)
  1. PRENATAL VITAMIN [Concomitant]
     Active Substance: VITAMINS
  2. VIMPAT [Concomitant]
     Active Substance: LACOSAMIDE
  3. FOLIC ACID. [Concomitant]
     Active Substance: FOLIC ACID
  4. LAMICTAL [Suspect]
     Active Substance: LAMOTRIGINE
     Indication: EPILEPSY
     Dosage: 100 MG AM AND 150 MG PM
     Route: 048
     Dates: start: 201301
  5. LAMICTAL [Suspect]
     Active Substance: LAMOTRIGINE

REACTIONS (2)
  - Exposure during pregnancy [Unknown]
  - Wrong technique in drug usage process [Unknown]
